FAERS Safety Report 4331129-4 (Version None)
Quarter: 2004Q1

REPORT INFORMATION
  Report Type: 
  Country: None (occurrence: None)
  Receive Date: 20040331
  Receipt Date: 20040323
  Transmission Date: 20041129
  Serious: Yes (Other)
  Sender: FDA-Public Use
  Company Number: US-SHR-03-015968

PATIENT
  Age: 61 Year
  Sex: Female
  Weight: 59 kg

DRUGS (10)
  1. BETASERON [Suspect]
     Indication: MULTIPLE SCLEROSIS
     Dosage: 8 MIU, EVERY 2D, SUBCUTANEOUS
     Route: 058
     Dates: start: 19940201
  2. ESTROGENIC SUBSTANCE [Concomitant]
  3. PROVERA [Concomitant]
  4. LEXAPRO [Concomitant]
  5. FLONASE [Concomitant]
  6. DETROL - SLOW RELEASE (TOLTERODINE L-TARTRATE) [Concomitant]
  7. PRILOSEC [Concomitant]
  8. MULTIVITAMINS (RETINOL) [Concomitant]
  9. FEMARA [Concomitant]
  10. FOSAMAX [Concomitant]

REACTIONS (6)
  - BREAST CANCER FEMALE [None]
  - GRANULOMA [None]
  - LUNG INFECTION [None]
  - LUNG NEOPLASM [None]
  - LYMPHOMA [None]
  - SPLENOMEGALY [None]
